FAERS Safety Report 17471778 (Version 1)
Quarter: 2020Q1

REPORT INFORMATION
  Report Type: Spontaneous
  Country: CN (occurrence: CN)
  Receive Date: 20200228
  Receipt Date: 20200228
  Transmission Date: 20200409
  Serious: Yes (Hospitalization)
  Sender: FDA-Public Use
  Company Number: CN-BAXTER-2020BAX004355

PATIENT
  Age: 24 Year
  Sex: Male
  Weight: 47 kg

DRUGS (4)
  1. HOLOXAN [Suspect]
     Active Substance: IFOSFAMIDE
     Indication: OSTEOSARCOMA
     Dosage: HOLOXAN POWDER FOR INJECTION + NS 500 ML
     Route: 041
     Dates: start: 20200204, end: 20200208
  2. HOLOXAN [Suspect]
     Active Substance: IFOSFAMIDE
     Dosage: DOSE RE-INTRODUCED, HOLOXAN POWDER FOR INJECTION + NS
     Route: 041
     Dates: start: 202002
  3. 0.9% SODIUM CHLORIDE INJECTION [Suspect]
     Active Substance: SODIUM CHLORIDE
     Indication: MEDICATION DILUTION
     Dosage: HOLOXAN POWDER FOR INJECTION 4.3 G + NS
     Route: 041
     Dates: start: 20200204, end: 20200208
  4. 0.9% SODIUM CHLORIDE INJECTION [Suspect]
     Active Substance: SODIUM CHLORIDE
     Dosage: DOSE RE-INTRODUCED, HOLOXAN POWDER FOR INJECTION + NS
     Route: 041
     Dates: start: 202002

REACTIONS (1)
  - Bone marrow failure [Recovering/Resolving]

NARRATIVE: CASE EVENT DATE: 20200214
